FAERS Safety Report 9284506 (Version 1)
Quarter: 2013Q2

REPORT INFORMATION
  Report Type: Spontaneous
  Country: US (occurrence: US)
  Receive Date: 20130510
  Receipt Date: 20130510
  Transmission Date: 20140414
  Serious: No
  Sender: FDA-Public Use
  Company Number: US-COVIDIEN/TYCO HEALTHCARE/MALLINCKRODT-T201301574

PATIENT
  Sex: Female
  Weight: 73.92 kg

DRUGS (8)
  1. FENTANYL TRANSDERMAL SYSTEM [Suspect]
     Indication: PAIN
     Dosage: 50 MCG/HR Q 72 HOURS
     Route: 062
  2. CHEMOTHERAPEUTICS [Suspect]
     Indication: ACUTE LYMPHOCYTIC LEUKAEMIA
  3. COREG [Concomitant]
     Indication: HYPERTENSION
     Dosage: UNK
  4. LASIX                              /00032601/ [Concomitant]
     Indication: HYPERTENSION
     Dosage: UNK
  5. NORCO [Concomitant]
     Indication: BREAKTHROUGH PAIN
     Dosage: 7.5/325
  6. ZOLOFT [Concomitant]
     Indication: DEPRESSION
     Dosage: UNK
  7. XANAX [Concomitant]
     Indication: ANXIETY
     Dosage: UNK
  8. POTASSIUM [Concomitant]
     Indication: SUPPLEMENTATION THERAPY
     Dosage: UNK

REACTIONS (1)
  - Night sweats [Not Recovered/Not Resolved]
